FAERS Safety Report 18186279 (Version 1)
Quarter: 2020Q3

REPORT INFORMATION
  Report Type: Spontaneous
  Country: US (occurrence: US)
  Receive Date: 20200822
  Receipt Date: 20200822
  Transmission Date: 20201103
  Serious: No
  Sender: FDA-Public Use
  Company Number: None

PATIENT
  Age: 73 Year
  Sex: Female
  Weight: 58.95 kg

DRUGS (9)
  1. MUPIROCIN OINTMENT, USP 22 GRAMS [Suspect]
     Active Substance: MUPIROCIN
     Indication: WOUND TREATMENT
     Route: 061
     Dates: start: 20200818, end: 20200819
  2. JANUVIA [Concomitant]
     Active Substance: SITAGLIPTIN PHOSPHATE
  3. HYDROCLOROTHIAZIDE [Concomitant]
     Active Substance: HYDROCHLOROTHIAZIDE
  4. FAXIGA [Concomitant]
  5. ACCUPRIL [Concomitant]
     Active Substance: QUINAPRIL HYDROCHLORIDE
  6. PRAVASTATIN. [Concomitant]
     Active Substance: PRAVASTATIN
  7. METFORMIN [Concomitant]
     Active Substance: METFORMIN HYDROCHLORIDE
  8. OMEPRAZOLE. [Concomitant]
     Active Substance: OMEPRAZOLE
  9. TRULICITY [Concomitant]
     Active Substance: DULAGLUTIDE

REACTIONS (5)
  - Application site erythema [None]
  - Application site rash [None]
  - Application site pruritus [None]
  - Application site pain [None]
  - Postoperative wound complication [None]

NARRATIVE: CASE EVENT DATE: 20200819
